FAERS Safety Report 23580874 (Version 1)
Quarter: 2024Q1

REPORT INFORMATION
  Report Type: Spontaneous
  Country: BE (occurrence: BE)
  Receive Date: 20240229
  Receipt Date: 20240229
  Transmission Date: 20240409
  Serious: Yes (Hospitalization, Other)
  Sender: FDA-Public Use
  Company Number: BE-MYLANLABS-2023M1120095

PATIENT
  Age: 64 Year
  Sex: Male

DRUGS (20)
  1. AZITHROMYCIN [Suspect]
     Active Substance: AZITHROMYCIN
     Indication: Cryptosporidiosis infection
     Dosage: 500 MG, QD
     Route: 065
  2. BECLOMETHASONE [Suspect]
     Active Substance: BECLOMETHASONE
     Indication: Prophylaxis against graft versus host disease
     Dosage: RESTART DOSE UNKNOWN
     Route: 061
  3. ETANERCEPT [Suspect]
     Active Substance: ETANERCEPT
     Indication: Graft versus host disease
     Dosage: UNKNOWN
     Route: 065
  4. EVEROLIMUS [Suspect]
     Active Substance: EVEROLIMUS
     Indication: Graft versus host disease
     Dosage: 0.5 MILLIGRAM, QD (ONCE A DAY)
     Route: 065
  5. FLUDARABINE PHOSPHATE [Suspect]
     Active Substance: FLUDARABINE PHOSPHATE
     Indication: Bone marrow conditioning regimen
     Dosage: UNKNOWN
     Route: 065
  6. METHOTREXATE [Suspect]
     Active Substance: METHOTREXATE
     Indication: Immunosuppressant drug therapy
     Dosage: RECEIVED UNDER SALVAGE THERAPY
     Route: 065
  7. MYCOPHENOLATE MOFETIL [Suspect]
     Active Substance: MYCOPHENOLATE MOFETIL
     Indication: Prophylaxis against graft versus host disease
     Dosage: UNKNOWN
     Route: 065
  8. MYCOPHENOLATE MOFETIL [Suspect]
     Active Substance: MYCOPHENOLATE MOFETIL
     Indication: Allogenic stem cell transplantation
  9. MELPHALAN [Suspect]
     Active Substance: MELPHALAN
     Indication: Bone marrow conditioning regimen
     Dosage: UNKNOWN
     Route: 065
  10. MELPHALAN [Suspect]
     Active Substance: MELPHALAN
     Indication: Immunosuppressant drug therapy
  11. METHYLPREDNISOLONE [Suspect]
     Active Substance: METHYLPREDNISOLONE
     Indication: Prophylaxis against graft versus host disease
     Dosage: RESTARTED DOSE UNKNOWN
     Route: 065
  12. METHYLPREDNISOLONE [Suspect]
     Active Substance: METHYLPREDNISOLONE
     Indication: Immunosuppressant drug therapy
  13. NITAZOXANIDE [Suspect]
     Active Substance: NITAZOXANIDE
     Indication: Diarrhoea
     Dosage: 1000 MILLIGRAM, BID
     Route: 065
  14. PAROMOMYCIN [Suspect]
     Active Substance: PAROMOMYCIN
     Indication: Cryptosporidiosis infection
     Dosage: 500 MILLIGRAM, QID (FOUR TIMES A DAY)
     Route: 065
  15. TACROLIMUS [Suspect]
     Active Substance: TACROLIMUS
     Indication: Prophylaxis against graft versus host disease
     Dosage: UNKNOWN
     Route: 065
  16. TACROLIMUS [Suspect]
     Active Substance: TACROLIMUS
     Indication: Allogenic stem cell transplantation
  17. THYMOGLOBULIN [Suspect]
     Active Substance: LAPINE T-LYMPHOCYTE IMMUNE GLOBULIN
     Indication: Graft versus host disease
     Dosage: RECEIVED ON DAY 83 OF THE ALLO-SCT
     Route: 065
  18. THYMOGLOBULIN [Suspect]
     Active Substance: LAPINE T-LYMPHOCYTE IMMUNE GLOBULIN
     Indication: Immunosuppressant drug therapy
  19. Ganciclovir accord [Concomitant]
     Indication: Cytomegalovirus infection reactivation
     Dosage: UNKNOWN
     Route: 065
  20. VALACYCLOVIR HYDROCHLORIDE [Concomitant]
     Active Substance: VALACYCLOVIR HYDROCHLORIDE
     Indication: Cytomegalovirus infection reactivation
     Dosage: UNKNOWN
     Route: 065

REACTIONS (5)
  - Disease recurrence [Recovered/Resolved]
  - Colitis [Recovered/Resolved]
  - Cryptosporidiosis infection [Recovered/Resolved]
  - Drug ineffective [Recovered/Resolved]
  - Off label use [Unknown]
